FAERS Safety Report 8031805-6 (Version None)
Quarter: 2012Q1

REPORT INFORMATION
  Report Type: 
  Country: None (occurrence: None)
  Receive Date: 20120109
  Receipt Date: 20120105
  Transmission Date: 20120608
  Serious: No
  Sender: FDA-Public Use
  Company Number: BR-ALLERGAN-1116342US

PATIENT
  Age: 75 Year
  Sex: Female

DRUGS (2)
  1. ALPHAGAN [Suspect]
     Indication: GLAUCOMA
     Dosage: 2 GTT, BID
     Route: 047
     Dates: end: 20111104
  2. ALPHAGAN [Suspect]
     Indication: CATARACT

REACTIONS (4)
  - OCULAR HYPERAEMIA [None]
  - EYE PAIN [None]
  - EYE ALLERGY [None]
  - EYE PRURITUS [None]
